FAERS Safety Report 9641446 (Version 1)
Quarter: 2013Q4

REPORT INFORMATION
  Report Type: Spontaneous
  Country: US (occurrence: US)
  Receive Date: 20131023
  Receipt Date: 20131023
  Transmission Date: 20140711
  Serious: No
  Sender: FDA-Public Use
  Company Number: US-ABBVIE-12P-163-1009742-00

PATIENT
  Age: 52 Year
  Sex: Female
  Weight: 72.64 kg

DRUGS (7)
  1. LUPRON DEPOT [Suspect]
     Indication: UTERINE LEIOMYOMA
     Route: 030
     Dates: start: 201209
  2. LEVOTHYROXINE [Concomitant]
     Indication: THYROIDECTOMY
  3. ZYRTEC [Concomitant]
     Indication: HYPERSENSITIVITY
  4. TYLENOL EXTRA STRENGTH [Concomitant]
     Indication: ARTHRALGIA
  5. PANTOPRAZOLE [Concomitant]
     Indication: GASTROOESOPHAGEAL REFLUX DISEASE
  6. AMBIEN [Concomitant]
     Indication: INSOMNIA
  7. SINGULAIR [Concomitant]
     Indication: ASTHMA

REACTIONS (12)
  - Hot flush [Not Recovered/Not Resolved]
  - Night sweats [Not Recovered/Not Resolved]
  - Feeling hot [Not Recovered/Not Resolved]
  - Feeling cold [Not Recovered/Not Resolved]
  - Headache [Not Recovered/Not Resolved]
  - Rash [Not Recovered/Not Resolved]
  - Nausea [Not Recovered/Not Resolved]
  - Dizziness [Not Recovered/Not Resolved]
  - Affect lability [Not Recovered/Not Resolved]
  - Memory impairment [Not Recovered/Not Resolved]
  - Insomnia [Not Recovered/Not Resolved]
  - Arthralgia [Not Recovered/Not Resolved]
